FAERS Safety Report 7162693-8 (Version None)
Quarter: 2010Q4

REPORT INFORMATION
  Report Type: 
  Country: None (occurrence: None)
  Receive Date: 20101215
  Receipt Date: 20091210
  Transmission Date: 20110411
  Serious: Yes (Death)
  Sender: FDA-Public Use
  Company Number: GB-PFIZER INC-2009309421

PATIENT
  Age: 45 Year

DRUGS (1)
  1. VFEND [Suspect]
     Indication: ASPERGILLOSIS

REACTIONS (2)
  - ASPERGILLOSIS [None]
  - DRUG INEFFECTIVE [None]
